FAERS Safety Report 4604089-6 (Version None)
Quarter: 2005Q1

REPORT INFORMATION
  Report Type: 
  Country: None (occurrence: None)
  Receive Date: 20050310
  Receipt Date: 20050304
  Transmission Date: 20050727
  Serious: Yes (Hospitalization)
  Sender: FDA-Public Use
  Company Number: FR-BRISTOL-MYERS SQUIBB COMPANY-12886230

PATIENT
  Age: 67 Year
  Sex: Female

DRUGS (4)
  1. GLUCOPHAGE [Suspect]
     Indication: DIABETES MELLITUS
     Route: 048
  2. DAONIL [Suspect]
     Indication: DIABETES MELLITUS
     Route: 048
  3. ZESTORETIC [Suspect]
     Indication: ESSENTIAL HYPERTENSION
     Route: 048
  4. LOGIMAX [Suspect]
     Indication: ESSENTIAL HYPERTENSION
     Dosage: LOGIMAX 5MG/47.5MG (FELODIPINE/METOPROLOL)
     Route: 048

REACTIONS (1)
  - CHOLESTASIS [None]
